FAERS Safety Report 6151016-9 (Version None)
Quarter: 2009Q2

REPORT INFORMATION
  Report Type: 
  Country: None (occurrence: None)
  Receive Date: 20090410
  Receipt Date: 20090223
  Transmission Date: 20091009
  Serious: No
  Sender: FDA-Public Use
  Company Number: A0770471A

PATIENT
  Sex: Female

DRUGS (2)
  1. TYKERB [Suspect]
     Indication: DRUG USE FOR UNKNOWN INDICATION
  2. XELODA [Concomitant]

REACTIONS (4)
  - DRY SKIN [None]
  - FATIGUE [None]
  - SKIN CHAPPED [None]
  - SKIN EXFOLIATION [None]
